FAERS Safety Report 12335588 (Version 2)
Quarter: 2016Q2

REPORT INFORMATION
  Report Type: Spontaneous
  Country: GB (occurrence: GB)
  Receive Date: 20160505
  Receipt Date: 20160509
  Transmission Date: 20160815
  Serious: Yes (Death, Hospitalization, Other)
  Sender: FDA-Public Use
  Company Number: GB-GLENMARK PHARMACEUTICALS INC, USA.-2016GMK022763

PATIENT
  Age: 57 Year
  Sex: Female

DRUGS (5)
  1. SERETIDE [Concomitant]
     Active Substance: FLUTICASONE PROPIONATE\SALMETEROL XINAFOATE
     Indication: CHRONIC OBSTRUCTIVE PULMONARY DISEASE
     Dosage: UNK
  2. SALBUTAMOL [Concomitant]
     Active Substance: ALBUTEROL
     Indication: CHRONIC OBSTRUCTIVE PULMONARY DISEASE
     Dosage: UNK
  3. THEOPHYLLINE [Suspect]
     Active Substance: THEOPHYLLINE ANHYDROUS
     Indication: CHRONIC OBSTRUCTIVE PULMONARY DISEASE
     Dosage: 450 MG, BID
     Route: 048
     Dates: start: 201304
  4. TIOTROPIUM [Concomitant]
     Active Substance: TIOTROPIUM
     Indication: CHRONIC OBSTRUCTIVE PULMONARY DISEASE
     Dosage: UNK
  5. PREDNISOLONE. [Concomitant]
     Active Substance: PREDNISOLONE
     Indication: CHRONIC OBSTRUCTIVE PULMONARY DISEASE
     Dosage: UNK

REACTIONS (17)
  - Gastrointestinal hypomotility [Recovered/Resolved]
  - Speech disorder [Unknown]
  - Fatigue [Unknown]
  - Tachyarrhythmia [Unknown]
  - Drug level increased [Unknown]
  - Hypokalaemia [Unknown]
  - Nausea [Unknown]
  - Sinus tachycardia [Unknown]
  - Hypocalcaemia [Unknown]
  - Vomiting [Unknown]
  - Cardiac failure congestive [Fatal]
  - Toxicity to various agents [Fatal]
  - Vision blurred [Unknown]
  - Hypomagnesaemia [Unknown]
  - Depressed level of consciousness [Unknown]
  - Seizure [Unknown]
  - Renal impairment [Fatal]
